FAERS Safety Report 24553516 (Version 1)
Quarter: 2024Q4

REPORT INFORMATION
  Report Type: Report from Study
  Country: US (occurrence: US)
  Receive Date: 20241028
  Receipt Date: 20241028
  Transmission Date: 20250114
  Serious: No
  Sender: ROCHE
  Company Number: US-ROCHE-3363350

PATIENT
  Age: 7 Year
  Sex: Male
  Weight: 25.8 kg

DRUGS (3)
  1. NUTROPIN AQ [Suspect]
     Active Substance: SOMATROPIN
     Indication: Hypothalamo-pituitary disorder
     Dosage: NUSPIN 10 MG PEN
     Route: 058
     Dates: start: 202303
  2. NUTROPIN AQ [Suspect]
     Active Substance: SOMATROPIN
     Route: 058
  3. CETIRIZINE HYDROCHLORIDE [Concomitant]
     Active Substance: CETIRIZINE HYDROCHLORIDE

REACTIONS (4)
  - Incorrect dose administered by device [Unknown]
  - Off label use [Unknown]
  - Ill-defined disorder [Unknown]
  - Blood pressure abnormal [Unknown]
